FAERS Safety Report 4535638-4 (Version None)
Quarter: 2004Q4

REPORT INFORMATION
  Report Type: 
  Country: None (occurrence: None)
  Receive Date: 20041222
  Receipt Date: 20041222
  Transmission Date: 20050328
  Serious: Yes (Life-Threatening)
  Sender: FDA-Public Use
  Company Number: None

PATIENT
  Age: 53 Year
  Sex: Male
  Weight: 70 kg

DRUGS (1)
  1. TAXUS STENT  ^DRUG ELUTING STENT^ [Suspect]

REACTIONS (2)
  - DEVICE FAILURE [None]
  - MECHANICAL COMPLICATION OF IMPLANT [None]
